FAERS Safety Report 13985323 (Version 1)
Quarter: 2017Q3

REPORT INFORMATION
  Report Type: Spontaneous
  Country: US (occurrence: None)
  Receive Date: 20170918
  Receipt Date: 20170918
  Transmission Date: 20171128
  Serious: Yes (Hospitalization)
  Sender: FDA-Public Use
  Company Number: None

PATIENT
  Age: 57 Year
  Sex: Female

DRUGS (1)
  1. SENSIPAR [Suspect]
     Active Substance: CINACALCET HYDROCHLORIDE
     Indication: CARCINOID TUMOUR
     Route: 048
     Dates: start: 20170714

REACTIONS (2)
  - Drug dose omission [None]
  - Fluid retention [None]

NARRATIVE: CASE EVENT DATE: 201708
